FAERS Safety Report 9742746 (Version 2)
Quarter: 2013Q4

REPORT INFORMATION
  Report Type: Spontaneous
  Country: US (occurrence: US)
  Receive Date: 20131210
  Receipt Date: 20131210
  Transmission Date: 20140711
  Serious: No
  Sender: FDA-Public Use
  Company Number: US-GILEAD-2009-0025963

PATIENT
  Age: 66 Year
  Sex: Female
  Weight: 49.89 kg

DRUGS (10)
  1. LETAIRIS [Suspect]
     Indication: PULMONARY ARTERIAL HYPERTENSION
     Route: 048
  2. LETAIRIS [Suspect]
     Route: 048
     Dates: start: 20091117
  3. NIFEDICAL XL [Concomitant]
  4. GABAPENTIN [Concomitant]
  5. OMEPRAZOLE [Concomitant]
  6. SEREVENT [Concomitant]
  7. BENZONATATE [Concomitant]
  8. MUCINEX [Concomitant]
  9. ASA LO-DOSE [Concomitant]
  10. CITRACAL+D [Concomitant]

REACTIONS (1)
  - Local swelling [Recovered/Resolved]
